FAERS Safety Report 15356330 (Version 1)
Quarter: 2018Q3

REPORT INFORMATION
  Report Type: Spontaneous
  Country: US (occurrence: US)
  Receive Date: 20180906
  Receipt Date: 20180906
  Transmission Date: 20181010
  Serious: Yes (Other)
  Sender: FDA-Public Use
  Company Number: US-TEVA-2018-US-951778

PATIENT
  Sex: Female

DRUGS (1)
  1. COPAXONE [Suspect]
     Active Substance: GLATIRAMER ACETATE
     Indication: MULTIPLE SCLEROSIS
     Route: 065

REACTIONS (5)
  - Injection site pain [Unknown]
  - Multiple sclerosis relapse [Recovered/Resolved]
  - Walking aid user [Unknown]
  - Limb discomfort [Unknown]
  - Knee arthroplasty [Unknown]

NARRATIVE: CASE EVENT DATE: 2016
